FAERS Safety Report 25852055 (Version 1)
Quarter: 2025Q3

REPORT INFORMATION
  Report Type: Report from Study
  Country: EU (occurrence: EU)
  Receive Date: 20250926
  Receipt Date: 20250926
  Transmission Date: 20251021
  Serious: Yes (Other)
  Sender: NORDIC PHARMA
  Company Number: EU-BIOCON BIOLOGICS LIMITED-BBL2025004967

PATIENT
  Age: 57 Year
  Sex: Male

DRUGS (3)
  1. METHOTREXATE [Suspect]
     Active Substance: METHOTREXATE
     Indication: Product used for unknown indication
     Dosage: 10 MILLIGRAM, QW
     Route: 065
     Dates: start: 20230327, end: 20250501
  2. HULIO [Concomitant]
     Active Substance: ADALIMUMAB-FKJP
     Indication: Product used for unknown indication
     Route: 065
  3. HULIO [Concomitant]
     Active Substance: ADALIMUMAB-FKJP
     Indication: Product used for unknown indication
     Dosage: 40 MILLIGRAM, Q2W
     Route: 065
     Dates: start: 20240207, end: 20250709

REACTIONS (8)
  - Bronchiectasis [Recovered/Resolved]
  - Pulmonary bulla [Recovered/Resolved]
  - Connective tissue disease-associated interstitial lung disease [Recovered/Resolved]
  - Pulmonary fibrosis [Recovered/Resolved]
  - Lower respiratory tract infection [Recovered/Resolved]
  - Rheumatoid arthritis [Recovered/Resolved]
  - Alveolitis [Recovered/Resolved]
  - Interstitial lung disease [Recovered/Resolved]

NARRATIVE: CASE EVENT DATE: 20241201
